FAERS Safety Report 7544557-0 (Version None)
Quarter: 2011Q2

REPORT INFORMATION
  Report Type: 
  Country: None (occurrence: None)
  Receive Date: 20110613
  Receipt Date: 20110607
  Transmission Date: 20111010
  Serious: Yes (Death, Hospitalization, Other)
  Sender: FDA-Public Use
  Company Number: NL-CELGENEUS-114-50794-11042162

PATIENT
  Sex: Male
  Weight: 55 kg

DRUGS (4)
  1. CIPROFLOXACIN [Concomitant]
     Route: 065
  2. VIDAZA [Suspect]
     Route: 065
     Dates: start: 20110307, end: 20110314
  3. VIDAZA [Suspect]
     Indication: ACUTE MYELOID LEUKAEMIA
     Route: 065
     Dates: start: 20101223, end: 20101231
  4. CLINDAMYCIN [Concomitant]
     Route: 065

REACTIONS (4)
  - LUNG NEOPLASM MALIGNANT [None]
  - NEUTROPENIA [None]
  - ISCHAEMIC CEREBRAL INFARCTION [None]
  - INFECTION [None]
